FAERS Safety Report 7918361-5 (Version None)
Quarter: 2011Q4

REPORT INFORMATION
  Report Type: 
  Country: None (occurrence: None)
  Receive Date: 20111116
  Receipt Date: 20111108
  Transmission Date: 20120403
  Serious: Yes (Hospitalization)
  Sender: FDA-Public Use
  Company Number: DE-ELI_LILLY_AND_COMPANY-DE201111002678

PATIENT
  Age: 67 Year
  Sex: Male
  Weight: 60 kg

DRUGS (2)
  1. TAXOTERE [Concomitant]
     Indication: PALLIATIVE CARE
     Dosage: 85 MG, UNKNOWN
     Route: 042
     Dates: start: 20110405, end: 20110503
  2. GEMZAR [Suspect]
     Indication: PALLIATIVE CARE
     Dosage: 1170 MG, UNKNOWN
     Route: 042
     Dates: start: 20110405, end: 20110412

REACTIONS (1)
  - GASTROENTERITIS [None]
